FAERS Safety Report 18037069 (Version 1)
Quarter: 2020Q3

REPORT INFORMATION
  Report Type: Spontaneous
  Country: GR (occurrence: GR)
  Receive Date: 20200717
  Receipt Date: 20200717
  Transmission Date: 20201103
  Serious: Yes (Death, Life-Threatening, Hospitalization, Other)
  Sender: FDA-Public Use
  Company Number: GR-ACCORD-190880

PATIENT
  Age: 20 Year
  Sex: Male

DRUGS (2)
  1. METHOTREXATE. [Suspect]
     Active Substance: METHOTREXATE
     Indication: METASTASES TO THE MEDIASTINUM
     Route: 037
  2. METHOTREXATE. [Suspect]
     Active Substance: METHOTREXATE
     Indication: OSTEOLYSIS
     Route: 037

REACTIONS (4)
  - Bacterial infection [Fatal]
  - Nosocomial infection [Fatal]
  - Leukopenia [Unknown]
  - Septic shock [Fatal]
